FAERS Safety Report 4332534-2 (Version None)
Quarter: 2004Q2

REPORT INFORMATION
  Report Type: 
  Country: None (occurrence: None)
  Receive Date: 20040401
  Receipt Date: 20040323
  Transmission Date: 20050107
  Serious: Yes (Disabling)
  Sender: FDA-Public Use
  Company Number: 200410273BVD

PATIENT
  Age: 65 Year
  Sex: Male

DRUGS (3)
  1. LIPOBAY (CERIVASTATIN SODIUM) [Suspect]
     Indication: HYPERLIPIDAEMIA
     Dosage: 0.2 MG, TOTAL DAILY, ORAL
     Route: 048
     Dates: start: 19991201, end: 20010331
  2. BRONCHORETARD [Concomitant]
  3. CORINDOLAN [Concomitant]

REACTIONS (7)
  - BLINDNESS UNILATERAL [None]
  - BLOOD PRESSURE INCREASED [None]
  - HYPOACUSIS [None]
  - LEUKOENCEPHALOPATHY [None]
  - RETINAL ARTERY OCCLUSION [None]
  - VERTIGO [None]
  - VESTIBULAR NEURONITIS [None]
